FAERS Safety Report 14779041 (Version 1)
Quarter: 2018Q2

REPORT INFORMATION
  Report Type: Spontaneous
  Country: US (occurrence: US)
  Receive Date: 20180412
  Receipt Date: 20180412
  Transmission Date: 20180711
  Serious: No
  Sender: FDA-Public Use
  Company Number: None

PATIENT
  Sex: Female

DRUGS (1)
  1. IBRANCE [Suspect]
     Active Substance: PALBOCICLIB
     Indication: PRODUCT USED FOR UNKNOWN INDICATION
     Dosage: PO DAILY FOR 21 DAYS OF A 28 DAY CYCLE  PO      ?ON HOLD
     Route: 048
     Dates: start: 20180316

REACTIONS (1)
  - White blood cell count decreased [None]
